FAERS Safety Report 8306412-8 (Version None)
Quarter: 2012Q2

REPORT INFORMATION
  Report Type: 
  Country: None (occurrence: None)
  Receive Date: 20120423
  Receipt Date: 20120329
  Transmission Date: 20120825
  Serious: Yes (Hospitalization)
  Sender: FDA-Public Use
  Company Number: PHHY2012AU027603

PATIENT
  Sex: Male

DRUGS (2)
  1. DIOVAN [Suspect]
  2. EXFORGE HCT [Suspect]

REACTIONS (11)
  - PAIN [None]
  - DIZZINESS [None]
  - LETHARGY [None]
  - NAUSEA [None]
  - PYREXIA [None]
  - MALAISE [None]
  - DELIRIUM [None]
  - POISONING [None]
  - VISUAL IMPAIRMENT [None]
  - OVERDOSE [None]
  - POLLAKIURIA [None]
